FAERS Safety Report 16471164 (Version 3)
Quarter: 2019Q3

REPORT INFORMATION
  Report Type: Report from Study
  Country: BE (occurrence: GB)
  Receive Date: 20190624
  Receipt Date: 20190722
  Transmission Date: 20191004
  Serious: Yes (Hospitalization)
  Sender: FDA-Public Use
  Company Number: BE-EXELIXIS-XL18419021991

PATIENT
  Age: 71 Year
  Sex: Female
  Weight: 52.8 kg

DRUGS (5)
  1. CINCHOCAINE W/HYDROCORTISONE [Concomitant]
     Indication: HAEMORRHOIDS
  2. GLYCERYL TRINITRATE [Concomitant]
     Active Substance: NITROGLYCERIN
     Indication: HAEMORRHOIDS
  3. DOXORUBICIN [Concomitant]
     Active Substance: DOXORUBICIN
     Dosage: 32 MG, Q WEEKLY
     Route: 042
     Dates: start: 20180920, end: 20190123
  4. CO-AMOXICLAV [Concomitant]
     Active Substance: AMOXICILLIN\CLAVULANATE POTASSIUM
     Indication: INFECTION
  5. XL184 [Suspect]
     Active Substance: CABOZANTINIB
     Indication: SARCOMA UTERUS
     Dosage: 60 MG, QD
     Route: 048
     Dates: start: 20190402, end: 20190603

REACTIONS (2)
  - Anal fistula [Recovered/Resolved with Sequelae]
  - Rectal abscess [Recovered/Resolved]

NARRATIVE: CASE EVENT DATE: 20190603
